FAERS Safety Report 12491504 (Version 1)
Quarter: 2016Q2

REPORT INFORMATION
  Report Type: Spontaneous
  Country: US (occurrence: None)
  Receive Date: 20160622
  Receipt Date: 20160622
  Transmission Date: 20160815
  Serious: No
  Sender: FDA-Public Use
  Company Number: None

PATIENT
  Age: 59 Year
  Sex: Female
  Weight: 50.8 kg

DRUGS (15)
  1. PROBIOTIC [Concomitant]
     Active Substance: PROBIOTICS NOS
  2. A-L-CARNITINE [Concomitant]
  3. N-ACETYL-CYSTINE [Concomitant]
  4. CALCIUM [Concomitant]
     Active Substance: CALCIUM
  5. RALA [Concomitant]
  6. COENZYME Q10 [Concomitant]
     Active Substance: UBIDECARENONE
  7. L-GLUTAMINE [Concomitant]
  8. MULTIVITAMINS [Concomitant]
     Active Substance: VITAMINS
  9. MAGNESIUM [Concomitant]
     Active Substance: MAGNESIUM
  10. ATOVAQUONE. [Suspect]
     Active Substance: ATOVAQUONE
     Indication: PROPHYLAXIS
     Dosage: 70 750MG IN 5ML ONCE A DAY TAKEN BY MOUTH
     Route: 048
     Dates: start: 20160510, end: 20160620
  11. VALACYCLOVIR [Concomitant]
     Active Substance: VALACYCLOVIR HYDROCHLORIDE
  12. VITAMIN D [Concomitant]
     Active Substance: CHOLECALCIFEROL
  13. AMITRIPTYLINE [Concomitant]
     Active Substance: AMITRIPTYLINE
  14. FISH OIL [Concomitant]
     Active Substance: FISH OIL
  15. LEVOTHYROXINE. [Concomitant]
     Active Substance: LEVOTHYROXINE

REACTIONS (2)
  - Rash [None]
  - Rash erythematous [None]

NARRATIVE: CASE EVENT DATE: 20160618
